FAERS Safety Report 8801781 (Version 2)
Quarter: 2012Q4

REPORT INFORMATION
  Report Type: 
  Country: KR (occurrence: KR)
  Receive Date: 20120921
  Receipt Date: 20121120
  Transmission Date: 20130627
  Serious: Yes (Death)
  Sender: FDA-Public Use
  Company Number: KR-ASTRAZENECA-2012SE72780

PATIENT
  Age: 33 Year
  Sex: Female

DRUGS (9)
  1. PROPOFOL [Suspect]
  2. DIAZEPAM [Suspect]
  3. NORDAZEPAM [Suspect]
  4. AMITRIPTYLINE [Suspect]
  5. MIRTAZAPINE [Suspect]
  6. TRAZODONE [Suspect]
  7. CITALOPRAM [Suspect]
  8. CHLORPHENIRAMINE [Suspect]
  9. CLONAZEPAM [Concomitant]

REACTIONS (1)
  - Death [Fatal]
